FAERS Safety Report 14928542 (Version 2)
Quarter: 2018Q2

REPORT INFORMATION
  Report Type: Spontaneous
  Country: JP (occurrence: JP)
  Receive Date: 20180523
  Receipt Date: 20180628
  Transmission Date: 20180711
  Serious: Yes (Other)
  Sender: FDA-Public Use
  Company Number: PHJP2017JP033066

PATIENT
  Age: 70 Year
  Sex: Female

DRUGS (5)
  1. JAKAVI TABLETS [Suspect]
     Active Substance: RUXOLITINIB
     Indication: PRIMARY MYELOFIBROSIS
     Dosage: 5 MG, BID
     Route: 048
     Dates: start: 201409
  2. DEFERASIROX [Suspect]
     Active Substance: DEFERASIROX
     Dosage: 20 MG, UNK
     Route: 048
     Dates: start: 201601
  3. JAKAVI TABLETS [Suspect]
     Active Substance: RUXOLITINIB
     Dosage: 15 MG (IN TWO DIVIDED DOSES), BID
     Route: 048
  4. DEFERASIROX [Suspect]
     Active Substance: DEFERASIROX
     Indication: PRODUCT USED FOR UNKNOWN INDICATION
     Dosage: 10 MG, UNK
     Route: 048
     Dates: start: 201409
  5. DEFERASIROX [Suspect]
     Active Substance: DEFERASIROX
     Dosage: 15 MG, UNK
     Route: 048
     Dates: start: 2015

REACTIONS (5)
  - Platelet count decreased [Recovering/Resolving]
  - Haemoglobin decreased [Recovering/Resolving]
  - Serum ferritin increased [Recovered/Resolved]
  - Abdominal distension [Recovered/Resolved]
  - Decreased appetite [Recovered/Resolved]

NARRATIVE: CASE EVENT DATE: 201410
